FAERS Safety Report 9333834 (Version 1)
Quarter: 2013Q2

REPORT INFORMATION
  Report Type: Spontaneous
  Country: US (occurrence: US)
  Receive Date: 20130606
  Receipt Date: 20130606
  Transmission Date: 20140414
  Serious: No
  Sender: FDA-Public Use
  Company Number: US-AMGEN-USASP2013003560

PATIENT
  Age: 69 Year
  Sex: Female

DRUGS (1)
  1. XGEVA [Suspect]
     Indication: METASTATIC UTERINE CANCER
     Dosage: 120 MG, UNK
     Dates: start: 2011

REACTIONS (2)
  - Renal disorder [Unknown]
  - Hypocalcaemia [Unknown]
